FAERS Safety Report 22207083 (Version 1)
Quarter: 2023Q2

REPORT INFORMATION
  Report Type: Report from Study
  Country: DK (occurrence: DK)
  Receive Date: 20230413
  Receipt Date: 20230413
  Transmission Date: 20230722
  Serious: Yes (Other)
  Sender: FDA-Public Use
  Company Number: DK-MYLANLABS-2023M1038172

PATIENT
  Age: 60 Year
  Sex: Male

DRUGS (7)
  1. PREGABALIN [Suspect]
     Active Substance: PREGABALIN
     Indication: Prophylaxis
     Dosage: 300 MILLIGRAM, MEDICATION BEFORE LOADING
     Route: 048
  2. PREGABALIN [Suspect]
     Active Substance: PREGABALIN
     Indication: Trigeminal neuralgia
     Dosage: 150 MILLIGRAM, MEDICATION 90 DAYS POST LOADING
     Route: 065
  3. PHENYTOIN [Suspect]
     Active Substance: PHENYTOIN
     Indication: Trigeminal neuralgia
     Dosage: 100 MILLIGRAM, MEDICATION 90 DAYS POST LOADING
     Route: 048
  4. CARBAMAZEPINE [Suspect]
     Active Substance: CARBAMAZEPINE
     Indication: Prophylaxis
     Dosage: 2400 MILLIGRAM, MEDICATION BEFORE LOADING
     Route: 048
  5. CARBAMAZEPINE [Suspect]
     Active Substance: CARBAMAZEPINE
     Indication: Trigeminal neuralgia
     Dosage: 1600 MILLIGRAM, MEDICATION 90 DAYS POST LOADING
     Route: 065
  6. FOSPHENYTOIN SODIUM [Concomitant]
     Active Substance: FOSPHENYTOIN SODIUM
     Indication: Trigeminal neuralgia
     Dosage: UNK, 20MG PER KILO BODY WEIGHT DILUTED IN ISOTONIC??
     Route: 042
  7. SALINE [Concomitant]
     Active Substance: SODIUM CHLORIDE
     Indication: Vehicle solution use
     Dosage: UNK, 20MG PER KILO BODY WEIGHT OF FOSPHENYTOIN ??..
     Route: 042

REACTIONS (1)
  - Drug ineffective [Unknown]
